FAERS Safety Report 8101532-5 (Version None)
Quarter: 2012Q1

REPORT INFORMATION
  Report Type: 
  Country: None (occurrence: None)
  Receive Date: 20120129
  Receipt Date: 20110924
  Transmission Date: 20120608
  Serious: No
  Sender: FDA-Public Use
  Company Number: US-ABBOTT-11P-163-0855696-00

PATIENT
  Age: 69 Year
  Sex: Female

DRUGS (9)
  1. HUMIRA [Suspect]
     Indication: CROHN'S DISEASE
     Dates: start: 20101001
  2. DEPLIN [Concomitant]
     Indication: VITAMIN SUPPLEMENTATION
     Dosage: DAILY
  3. VITAMIN D [Concomitant]
     Indication: VITAMIN SUPPLEMENTATION
     Dosage: DAILY
  4. MULTIVITAMIN [Concomitant]
     Indication: VITAMIN SUPPLEMENTATION
     Dosage: DAILY
  5. FISH OIL [Concomitant]
     Indication: MEDICAL DIET
     Dosage: DAILY
  6. PENTASA [Concomitant]
     Indication: CROHN'S DISEASE
  7. CALCIUM [Concomitant]
     Indication: MINERAL SUPPLEMENTATION
     Dosage: DAILY
  8. THYROID TAB [Concomitant]
     Indication: HYPOTHYROIDISM
     Dosage: DAILY
  9. LOVAZA [Concomitant]
     Indication: MEDICAL DIET
     Dosage: DAILY

REACTIONS (8)
  - VULVOVAGINAL PRURITUS [None]
  - PRURITUS [None]
  - URINARY TRACT INFECTION [None]
  - ALLERGY TO ARTHROPOD STING [None]
  - ARTHROPOD STING [None]
  - IMPAIRED HEALING [None]
  - RASH [None]
  - ANXIETY [None]
